FAERS Safety Report 6285423-0 (Version None)
Quarter: 2009Q3

REPORT INFORMATION
  Report Type: 
  Country: None (occurrence: None)
  Receive Date: 20090723
  Receipt Date: 20090710
  Transmission Date: 20100115
  Serious: Yes (Hospitalization)
  Sender: FDA-Public Use
  Company Number: 1000006212

PATIENT
  Age: 79 Year
  Sex: Female
  Weight: 80.2 kg

DRUGS (14)
  1. CELEXA [Suspect]
     Indication: DEPRESSION
     Dosage: 10 MG (10 MG,1 IN 1 D),ORAL
     Route: 048
     Dates: start: 20080513, end: 20080501
  2. CELEXA [Suspect]
     Indication: DEPRESSION
     Dosage: 20 MG (20 MG,1 IN 1 D),ORAL
     Route: 048
     Dates: start: 20080501, end: 20080725
  3. AVALIDE [Suspect]
     Indication: HYPERTENSION
     Dosage: 1 DOSAGE FORMS (1 DOSAGE FORMS,1 IN 1 D),ORAL
     Route: 048
     Dates: start: 20071101, end: 20080719
  4. ARICEPT [Concomitant]
  5. ASAPHEN [Concomitant]
  6. CALCIUM [Concomitant]
  7. CELECOXIB (CAPSULES) [Concomitant]
  8. LACTULOSE [Concomitant]
  9. LASIX [Concomitant]
  10. LIPITOR [Concomitant]
  11. LOPRESSOR SR(TABLETS) [Concomitant]
  12. PRILOSEC [Concomitant]
  13. SYNTHROID [Concomitant]
  14. VITAMIN D [Concomitant]

REACTIONS (8)
  - BLOOD OSMOLARITY DECREASED [None]
  - BLOOD SODIUM DECREASED [None]
  - DECREASED APPETITE [None]
  - DEPRESSION [None]
  - DIARRHOEA [None]
  - DRUG INTERACTION [None]
  - NAUSEA [None]
  - VOMITING [None]
